FAERS Safety Report 8321346-0 (Version None)
Quarter: 2012Q2

REPORT INFORMATION
  Report Type: 
  Country: None (occurrence: None)
  Receive Date: 20120430
  Receipt Date: 20120424
  Transmission Date: 20120825
  Serious: Yes (Death)
  Sender: FDA-Public Use
  Company Number: US-ACTELION-A-NJ2012-63320

PATIENT

DRUGS (2)
  1. TRACLEER [Suspect]
     Indication: PULMONARY ARTERIAL HYPERTENSION
     Dosage: UNK
     Route: 048
     Dates: start: 20090407, end: 20120419
  2. VENTAVIS [Suspect]
     Indication: PULMONARY ARTERIAL HYPERTENSION
     Dosage: UNK
     Route: 055
     Dates: start: 20091027, end: 20120419

REACTIONS (5)
  - BACK PAIN [None]
  - PULMONARY HYPERTENSION [None]
  - CONFUSIONAL STATE [None]
  - CYSTITIS [None]
  - LOSS OF CONSCIOUSNESS [None]
